FAERS Safety Report 7315305-4 (Version None)
Quarter: 2011Q1

REPORT INFORMATION
  Report Type: 
  Country: None (occurrence: None)
  Receive Date: 20110225
  Receipt Date: 20110218
  Transmission Date: 20110831
  Serious: Yes (Death, Hospitalization, Other)
  Sender: FDA-Public Use
  Company Number: PHHO2010US14038

PATIENT
  Sex: Female
  Weight: 61 kg

DRUGS (1)
  1. ZOLEDRONATE [Suspect]
     Indication: BREAST CANCER METASTATIC
     Dosage: UNK
     Dates: start: 20091210, end: 20100304

REACTIONS (10)
  - ABDOMINAL PAIN [None]
  - SPINAL FRACTURE [None]
  - CHEST PAIN [None]
  - PULMONARY HYPERTENSION [None]
  - EJECTION FRACTION DECREASED [None]
  - SCIATICA [None]
  - ANAEMIA [None]
  - VENTRICULAR HYPOKINESIA [None]
  - BACK PAIN [None]
  - NEOPLASM MALIGNANT [None]
